FAERS Safety Report 8526323 (Version 5)
Quarter: 2013Q4

REPORT INFORMATION
  Report Type: Spontaneous
  Country: FR (occurrence: FR)
  Receive Date: 20120423
  Receipt Date: 20131031
  Transmission Date: 20140711
  Serious: Yes (Death, Hospitalization)
  Sender: FDA-Public Use
  Company Number: FR-009507513-1204FRA00093

PATIENT
  Age: 92 Year
  Sex: Male
  Weight: 73 kg

DRUGS (6)
  1. VELMETIA [Suspect]
     Indication: TYPE 2 DIABETES MELLITUS
     Dosage: 2 DF, QD
     Route: 048
     Dates: start: 20100309, end: 20120215
  2. LIPANTHYL [Concomitant]
     Indication: DYSLIPIDAEMIA
     Dosage: 145 MG, QD
     Route: 048
  3. PARIET [Concomitant]
     Indication: OESOPHAGITIS
     Dosage: 10 MG, QD
     Route: 048
     Dates: end: 20120709
  4. XATRAL [Concomitant]
     Indication: PROSTATIC ADENOMA
     Dosage: 10 MG, QD
     Route: 048
  5. BRONCHODUAL [Concomitant]
     Indication: DYSPNOEA
     Dosage: 3 DF, QD
     Route: 055
  6. TARDYFERON [Concomitant]
     Indication: ANAEMIA
     Dosage: 160 MG, QD
     Route: 048
     Dates: end: 20120709

REACTIONS (1)
  - Bladder transitional cell carcinoma stage III [Fatal]
